FAERS Safety Report 7284022-1 (Version None)
Quarter: 2011Q1

REPORT INFORMATION
  Report Type: 
  Country: None (occurrence: None)
  Receive Date: 20110209
  Receipt Date: 20110131
  Transmission Date: 20110831
  Serious: Yes (Hospitalization)
  Sender: FDA-Public Use
  Company Number: BR-ASTRAZENECA-2011SE05501

PATIENT
  Age: 50 Year
  Sex: Male

DRUGS (13)
  1. SEROQUEL [Suspect]
     Indication: MANIA
     Route: 048
     Dates: start: 20100101, end: 20101101
  2. SEROQUEL [Suspect]
     Indication: OBSESSIVE THOUGHTS
     Route: 048
     Dates: start: 20100101, end: 20101101
  3. CRESTOR [Suspect]
     Indication: HYPERCHOLESTEROLAEMIA
     Route: 048
     Dates: start: 20070101
  4. TRILEPTAL [Concomitant]
     Indication: OBSESSIVE THOUGHTS
     Route: 048
  5. RIVOTRIL [Concomitant]
     Indication: OBSESSIVE THOUGHTS
     Route: 048
     Dates: start: 20101101
  6. TRILEPTAL [Concomitant]
     Indication: MANIA
     Route: 048
  7. SEROQUEL [Suspect]
     Route: 048
     Dates: start: 20101101
  8. GABAPENTIN [Concomitant]
     Indication: MANIA
     Route: 048
     Dates: start: 20101101
  9. SERTRALINE HYDROCHLORIDE [Concomitant]
     Indication: MANIA
     Route: 048
     Dates: start: 20101101
  10. SEROQUEL [Suspect]
     Route: 048
     Dates: start: 20101101
  11. RIVOTRIL [Concomitant]
     Indication: MANIA
     Route: 048
     Dates: start: 20101101
  12. GABAPENTIN [Concomitant]
     Indication: OBSESSIVE THOUGHTS
     Route: 048
     Dates: start: 20101101
  13. SERTRALINE HYDROCHLORIDE [Concomitant]
     Indication: OBSESSIVE THOUGHTS
     Route: 048
     Dates: start: 20101101

REACTIONS (6)
  - FALL [None]
  - DISTURBANCE IN SOCIAL BEHAVIOUR [None]
  - DEPRESSION [None]
  - AGGRESSION [None]
  - AFFECTIVE DISORDER [None]
  - EATING DISORDER [None]
